FAERS Safety Report 7206060-7 (Version None)
Quarter: 2010Q4

REPORT INFORMATION
  Report Type: 
  Country: None (occurrence: None)
  Receive Date: 20101229
  Receipt Date: 20101229
  Transmission Date: 20110411
  Serious: No
  Sender: FDA-Public Use
  Company Number: None

PATIENT
  Age: 30 Year
  Sex: Female
  Weight: 47.6277 kg

DRUGS (1)
  1. AVELOX [Suspect]
     Indication: PHARYNGITIS
     Dosage: 3 ONCE DAILY PO
     Route: 048
     Dates: start: 20100821, end: 20100823

REACTIONS (13)
  - BURNING SENSATION [None]
  - DECREASED APPETITE [None]
  - FATIGUE [None]
  - IMPAIRED GASTRIC EMPTYING [None]
  - INSOMNIA [None]
  - MUSCULAR WEAKNESS [None]
  - NAUSEA [None]
  - NEUROPATHY PERIPHERAL [None]
  - PALPITATIONS [None]
  - PARAESTHESIA [None]
  - SYNCOPE [None]
  - TREMOR [None]
  - WEIGHT DECREASED [None]
